FAERS Safety Report 4396179-0 (Version None)
Quarter: 2004Q3

REPORT INFORMATION
  Report Type: 
  Country: None (occurrence: None)
  Receive Date: 20040709
  Receipt Date: 20040625
  Transmission Date: 20050211
  Serious: Yes (Disabling)
  Sender: FDA-Public Use
  Company Number: 200212999

PATIENT
  Age: 51 Year
  Sex: Female

DRUGS (1)
  1. BOTOX COSMETIC [Suspect]
     Indication: SKIN WRINKLING
     Dosage: 155 UNITS PRN IM
     Route: 030
     Dates: start: 20020618

REACTIONS (27)
  - ANXIETY [None]
  - BURNING SENSATION [None]
  - DEPRESSION [None]
  - DISCOMFORT [None]
  - DYSPHAGIA [None]
  - EAR, NOSE AND THROAT EXAMINATION ABNORMAL [None]
  - GLOSSODYNIA [None]
  - HOARSENESS [None]
  - IMPAIRED WORK ABILITY [None]
  - INFLUENZA LIKE ILLNESS [None]
  - INSOMNIA [None]
  - INTERVERTEBRAL DISC DISORDER [None]
  - LARYNGEAL OEDEMA [None]
  - MUSCLE CONTRACTIONS INVOLUNTARY [None]
  - MUSCLE STRAIN [None]
  - MUSCLE TIGHTNESS [None]
  - MUSCULOSKELETAL STIFFNESS [None]
  - NEUROPATHY PERIPHERAL [None]
  - ORAL DISCOMFORT [None]
  - PAIN [None]
  - PARAESTHESIA [None]
  - PYREXIA [None]
  - RADICULOPATHY [None]
  - SWOLLEN TONGUE [None]
  - THROAT IRRITATION [None]
  - TONGUE DISCOLOURATION [None]
  - TONGUE DISORDER [None]
